FAERS Safety Report 5269155-3 (Version None)
Quarter: 2007Q1

REPORT INFORMATION
  Report Type: 
  Country: None (occurrence: None)
  Receive Date: 20070319
  Receipt Date: 20070312
  Transmission Date: 20070707
  Serious: Yes (Hospitalization)
  Sender: FDA-Public Use
  Company Number: US-ROXANE LABORATORIES, INC-2007-BP-03372RO

PATIENT
  Age: 31 Year
  Sex: Male

DRUGS (9)
  1. DIGOXIN [Suspect]
     Indication: CONGESTIVE CARDIOMYOPATHY
     Dosage: 0.25 MG/DAY
     Route: 048
  2. DIGOXIN [Suspect]
     Dosage: 0.125 MG/DAY
     Route: 048
  3. DIGOXIN [Suspect]
     Dosage: 0.125 MG TWICE/WEEK
     Route: 048
  4. AMIODARONE HCL [Suspect]
     Indication: ATRIAL FIBRILLATION
     Dosage: 600 MG/DAY
     Route: 048
  5. AMIODARONE HCL [Suspect]
     Dosage: 200 MG/DAY
     Route: 048
  6. FUROSEMIDE [Concomitant]
     Route: 048
  7. BENAZEPRIL HYDROCHLORIDE [Concomitant]
     Route: 048
  8. ASPIRIN [Concomitant]
     Route: 048
  9. FLUTICASONE PROPIONATE [Concomitant]
     Route: 045

REACTIONS (9)
  - ALANINE AMINOTRANSFERASE INCREASED [None]
  - ASPARTATE AMINOTRANSFERASE INCREASED [None]
  - ATRIAL FIBRILLATION [None]
  - BILIRUBIN CONJUGATED [None]
  - BLOOD BILIRUBIN INCREASED [None]
  - BLOOD CREATININE DECREASED [None]
  - BLOOD UREA INCREASED [None]
  - CARDIAC MURMUR [None]
  - CARDIOACTIVE DRUG LEVEL [None]
